FAERS Safety Report 6087246-4 (Version None)
Quarter: 2009Q1

REPORT INFORMATION
  Report Type: 
  Country: None (occurrence: None)
  Receive Date: 20090219
  Receipt Date: 20090219
  Transmission Date: 20090719
  Serious: No
  Sender: FDA-Public Use
  Company Number: None

PATIENT
  Age: 15 Year
  Sex: Male
  Weight: 44.2257 kg

DRUGS (5)
  1. ADDERALL 10 [Suspect]
     Dosage: 40MG DAY PO
     Route: 048
  2. DIVALPROEX SODIUM [Suspect]
     Dosage: 750MG DAY PO
     Route: 048
  3. .. [Concomitant]
  4. QUETIAPINE FUMARATE [Concomitant]
  5. .. [Concomitant]

REACTIONS (1)
  - WEIGHT DECREASED [None]
